FAERS Safety Report 8144048-2 (Version None)
Quarter: 2012Q1

REPORT INFORMATION
  Report Type: 
  Country: None (occurrence: None)
  Receive Date: 20120217
  Receipt Date: 20120217
  Transmission Date: 20120608
  Serious: Yes (Life-Threatening, Hospitalization)
  Sender: FDA-Public Use
  Company Number: None

PATIENT
  Age: 29 Year
  Sex: Female
  Weight: 102.05 kg

DRUGS (1)
  1. ABILIFY [Suspect]
     Indication: ADJUVANT THERAPY
     Dosage: 2MG
     Route: 048
     Dates: start: 20101208, end: 20101228

REACTIONS (24)
  - CRYING [None]
  - ACTIVITIES OF DAILY LIVING IMPAIRED [None]
  - JOINT SWELLING [None]
  - INSOMNIA [None]
  - SCREAMING [None]
  - MUSCULOSKELETAL DISORDER [None]
  - OEDEMA PERIPHERAL [None]
  - MUSCLE SPASMS [None]
  - GAIT DISTURBANCE [None]
  - SKIN ODOUR ABNORMAL [None]
  - VOMITING [None]
  - SKIN DISORDER [None]
  - ANGER [None]
  - AGGRESSION [None]
  - CONFUSIONAL STATE [None]
  - SKIN STRIAE [None]
  - PAIN [None]
  - PYREXIA [None]
  - HYPERHIDROSIS [None]
  - POSTURE ABNORMAL [None]
  - WEIGHT DECREASED [None]
  - HALLUCINATION, VISUAL [None]
  - ASTHENIA [None]
  - IMPAIRED SELF-CARE [None]
